FAERS Safety Report 20695962 (Version 2)
Quarter: 2022Q2

REPORT INFORMATION
  Report Type: Spontaneous
  Country: BR (occurrence: BR)
  Receive Date: 20220411
  Receipt Date: 20220418
  Transmission Date: 20220721
  Serious: Yes (Other)
  Sender: FDA-Public Use
  Company Number: BR-PFIZER INC-202200505049

PATIENT
  Age: 60 Year
  Sex: Male

DRUGS (2)
  1. DOXORUBICIN HYDROCHLORIDE [Suspect]
     Active Substance: DOXORUBICIN HYDROCHLORIDE
     Indication: Dedifferentiated liposarcoma
     Dosage: 25 MG/M2, CYCLIC, ON DAYS 1-3 FOR FOUR CYCLES
     Dates: start: 202007
  2. IFOSFAMIDE [Suspect]
     Active Substance: IFOSFAMIDE
     Indication: Dedifferentiated liposarcoma
     Dosage: 3 G/M2, CYCLIC, ON DAYS 1-3 FOR FOUR CYCLES
     Dates: start: 202007

REACTIONS (4)
  - Myelosuppression [Recovering/Resolving]
  - Neutropenia [Recovered/Resolved]
  - Anaemia [Recovered/Resolved]
  - Renal failure [Recovering/Resolving]

NARRATIVE: CASE EVENT DATE: 20200701
